FAERS Safety Report 4640452-5 (Version None)
Quarter: 2005Q2

REPORT INFORMATION
  Report Type: 
  Country: None (occurrence: None)
  Receive Date: 20050419
  Receipt Date: 20050406
  Transmission Date: 20051028
  Serious: Yes (Hospitalization)
  Sender: FDA-Public Use
  Company Number: 2002126113US

PATIENT
  Age: 61 Year
  Sex: Female
  Weight: 78.91 kg

DRUGS (14)
  1. CAMPTOSAR [Suspect]
     Indication: SMALL CELL LUNG CANCER STAGE UNSPECIFIED
     Dosage: 45 MG/M2 (CYCLE 3, D1+8, Q21DAYS), INTRAVENOUS
     Route: 042
     Dates: start: 20020712, end: 20020917
  2. CISPLATIN [Suspect]
     Indication: SMALL CELL LUNG CANCER STAGE UNSPECIFIED
     Dosage: 25 MG/M2 (CYCLE 3, D1+8, Q21DAYS), INTRAVENOUS
     Route: 042
     Dates: start: 20020712, end: 20020917
  3. ATENOLOL [Concomitant]
  4. DEMECLOCYCLINE (DEMECLOCYCLINE) [Concomitant]
  5. ONDANSETRON HCL [Concomitant]
  6. LISINOPRIL [Concomitant]
  7. LORAZEPAM [Concomitant]
  8. MAGNESIUM OXIDE (MAGNESIUM OXIDE) [Concomitant]
  9. POTASSIUM ACETATE [Concomitant]
  10. TRAZODONE HCL [Concomitant]
  11. LOMOTIL [Concomitant]
  12. VICODIN [Concomitant]
  13. TRIMETHOBENZAMIDE (TRIMETHOBENZAMIDE) [Concomitant]
  14. SODIUM CHLORIDE 0.9% [Concomitant]

REACTIONS (6)
  - HYPONATRAEMIA [None]
  - IATROGENIC INJURY [None]
  - MALIGNANT NEOPLASM PROGRESSION [None]
  - NAUSEA [None]
  - NON-SMALL CELL LUNG CANCER [None]
  - VOMITING [None]
